FAERS Safety Report 9636055 (Version 1)
Quarter: 2013Q4

REPORT INFORMATION
  Report Type: Spontaneous
  Country: PL (occurrence: PL)
  Receive Date: 20131021
  Receipt Date: 20131021
  Transmission Date: 20140711
  Serious: Yes (Death)
  Sender: FDA-Public Use
  Company Number: PHHY2013PL117762

PATIENT
  Age: 28 Year
  Sex: Male

DRUGS (1)
  1. CLOZAPINE [Suspect]

REACTIONS (2)
  - Completed suicide [Fatal]
  - Circulatory collapse [Fatal]
